FAERS Safety Report 20669067 (Version 1)
Quarter: 2022Q2

REPORT INFORMATION
  Report Type: Spontaneous
  Country: US (occurrence: US)
  Receive Date: 20220404
  Receipt Date: 20220404
  Transmission Date: 20220721
  Serious: Yes (Hospitalization, Other)
  Sender: FDA-Public Use
  Company Number: US-ASTELLAS-2022US012224

PATIENT
  Age: 74 Year
  Sex: Female

DRUGS (8)
  1. REGADENOSON [Suspect]
     Active Substance: REGADENOSON
     Indication: Single photon emission computerised tomogram
     Dosage: UNK UNK, UNKNOWN FREQ.
     Route: 065
  2. REGADENOSON [Suspect]
     Active Substance: REGADENOSON
     Indication: Single photon emission computerised tomogram
     Dosage: UNK UNK, UNKNOWN FREQ.
     Route: 065
  3. REGADENOSON [Suspect]
     Active Substance: REGADENOSON
     Indication: Single photon emission computerised tomogram
     Dosage: UNK UNK, UNKNOWN FREQ.
     Route: 065
  4. REGADENOSON [Suspect]
     Active Substance: REGADENOSON
     Indication: Single photon emission computerised tomogram
     Dosage: UNK UNK, UNKNOWN FREQ.
     Route: 065
  5. REGADENOSON [Suspect]
     Active Substance: REGADENOSON
     Indication: Scan myocardial perfusion
  6. REGADENOSON [Suspect]
     Active Substance: REGADENOSON
     Indication: Scan myocardial perfusion
  7. REGADENOSON [Suspect]
     Active Substance: REGADENOSON
     Indication: Scan myocardial perfusion
  8. REGADENOSON [Suspect]
     Active Substance: REGADENOSON
     Indication: Scan myocardial perfusion

REACTIONS (1)
  - Stress cardiomyopathy [Unknown]
